FAERS Safety Report 11877614 (Version 1)
Quarter: 2015Q4

REPORT INFORMATION
  Report Type: Other
  Country: DE (occurrence: DE)
  Receive Date: 20151230
  Receipt Date: 20151230
  Transmission Date: 20160305
  Serious: Yes (Other)
  Sender: FDA-Public Use
  Company Number: DE-MYLANLABS-2015M1046120

PATIENT

DRUGS (5)
  1. SEROQUEL [Suspect]
     Active Substance: QUETIAPINE FUMARATE
     Indication: PSYCHOTIC DISORDER
     Dosage: 150 [MG/D ]
     Route: 064
     Dates: start: 20141021, end: 20150701
  2. VENLAFAXINE [Suspect]
     Active Substance: VENLAFAXINE HYDROCHLORIDE
     Indication: DEPRESSION
     Dosage: 300 [MG/D ]
     Route: 064
     Dates: start: 20141021, end: 20150701
  3. URSODEOXYCHOLIC ACID [Concomitant]
     Active Substance: URSODIOL
     Indication: CHOLESTASIS OF PREGNANCY
     Dosage: 150 [MG/D ]
     Route: 064
     Dates: start: 20150621, end: 20150701
  4. FOLIO                              /00349401/ [Concomitant]
     Indication: VITAMIN SUPPLEMENTATION
     Dosage: 0.4 [MG/D ]
     Route: 064
  5. AMITRIPTYLIN [Concomitant]
     Active Substance: AMITRIPTYLINE
     Indication: DEPRESSION
     Dosage: 50 [MG/D ]
     Route: 064

REACTIONS (8)
  - Atrial septal defect [Unknown]
  - Temperature regulation disorder [Recovered/Resolved]
  - Feeding disorder of infancy or early childhood [Recovered/Resolved]
  - Hypotonia neonatal [Recovered/Resolved]
  - Syndactyly [Not Recovered/Not Resolved]
  - Seizure [Recovered/Resolved]
  - Agitation neonatal [Recovered/Resolved]
  - Foetal exposure during pregnancy [Unknown]

NARRATIVE: CASE EVENT DATE: 20150701
